FAERS Safety Report 23082658 (Version 1)
Quarter: 2023Q4

REPORT INFORMATION
  Report Type: Other
  Country: US (occurrence: None)
  Receive Date: 20231019
  Receipt Date: 20231019
  Transmission Date: 20240109
  Serious: Yes (Death)
  Sender: FDA-Public Use
  Company Number: US-ROCHE-3227631

PATIENT
  Age: 63 Year
  Sex: Female

DRUGS (1)
  1. KADCYLA [Suspect]
     Active Substance: ADO-TRASTUZUMAB EMTANSINE
     Indication: Malignant neoplasm of uterine adnexa
     Dosage: INFUSE 240MG INTRAVENOUSLY EVERY 21 DAYS
     Route: 042

REACTIONS (4)
  - Product dispensing error [Unknown]
  - Underdose [Unknown]
  - Death [Fatal]
  - Off label use [Unknown]
